FAERS Safety Report 7575558-4 (Version None)
Quarter: 2011Q2

REPORT INFORMATION
  Report Type: 
  Country: None (occurrence: None)
  Receive Date: 20110627
  Receipt Date: 20110622
  Transmission Date: 20111010
  Serious: Yes (Hospitalization, Disabling, Other)
  Sender: FDA-Public Use
  Company Number: US-MERCK-0903USA01811

PATIENT
  Age: 35 Year
  Sex: Female

DRUGS (7)
  1. THEOPHYLLINE [Concomitant]
     Indication: ASTHMA
     Route: 065
     Dates: start: 19870101
  2. FOSAMAX [Suspect]
     Route: 048
     Dates: start: 20040901, end: 20050601
  3. FOSAMAX [Suspect]
     Route: 048
     Dates: start: 19980601
  4. FOSAMAX PLUS D [Suspect]
     Indication: OSTEOPENIA
     Route: 048
     Dates: start: 20050627, end: 20090501
  5. FOSAMAX [Suspect]
     Indication: OSTEOPENIA
     Route: 048
     Dates: start: 19980605, end: 20040801
  6. FOSAMAX PLUS D [Suspect]
     Indication: OSTEOARTHRITIS
     Route: 048
     Dates: start: 20050627, end: 20090501
  7. PREDNISONE [Concomitant]
     Indication: ASTHMA
     Route: 065
     Dates: start: 19860101

REACTIONS (75)
  - ACUTE RESPIRATORY FAILURE [None]
  - ASTHMA [None]
  - PNEUMONIA STAPHYLOCOCCAL [None]
  - STAPHYLOCOCCAL INFECTION [None]
  - OSTEONECROSIS OF JAW [None]
  - ANGIOPATHY [None]
  - PSORIASIS [None]
  - OEDEMA PERIPHERAL [None]
  - TOOTH ABSCESS [None]
  - RIB FRACTURE [None]
  - INTERVERTEBRAL DISC PROTRUSION [None]
  - HYPOTHYROIDISM [None]
  - ARTHRITIS [None]
  - EYE DISORDER [None]
  - ABSCESS JAW [None]
  - CAVERNOUS SINUS THROMBOSIS [None]
  - CONJUNCTIVAL OEDEMA [None]
  - NEUROPATHY PERIPHERAL [None]
  - CONFUSIONAL STATE [None]
  - WOUND DECOMPOSITION [None]
  - CARPAL TUNNEL SYNDROME [None]
  - REACTION TO FOOD ADDITIVE [None]
  - RADICULOPATHY [None]
  - JAW DISORDER [None]
  - SINUS POLYP [None]
  - INTERVERTEBRAL DISC DEGENERATION [None]
  - BACTERIAL DISEASE CARRIER [None]
  - LIGAMENT DISORDER [None]
  - SPONDYLOLISTHESIS [None]
  - DEPRESSION [None]
  - BRONCHITIS [None]
  - ADVERSE EVENT [None]
  - DERMAL CYST [None]
  - HYPOGAMMAGLOBULINAEMIA [None]
  - MUSCULAR WEAKNESS [None]
  - CHEST PAIN [None]
  - OSTEOMYELITIS [None]
  - JUGULAR VEIN THROMBOSIS [None]
  - DEAFNESS [None]
  - URINARY TRACT INFECTION [None]
  - TRANSVERSE SINUS THROMBOSIS [None]
  - TRACHEOBRONCHITIS [None]
  - SYNOVIAL CYST [None]
  - DRUG EXPOSURE DURING PREGNANCY [None]
  - OSTEOPOROSIS [None]
  - SPINAL COLUMN STENOSIS [None]
  - HYPERTENSION [None]
  - GASTROOESOPHAGEAL REFLUX DISEASE [None]
  - FIBROMYALGIA [None]
  - PAIN [None]
  - OTITIS EXTERNA [None]
  - PILONIDAL CYST [None]
  - PARAESTHESIA [None]
  - ARTHRALGIA [None]
  - SKIN ULCER [None]
  - SKIN DISORDER [None]
  - ARTHROPATHY [None]
  - FOOT FRACTURE [None]
  - BACK PAIN [None]
  - HYPERLIPIDAEMIA [None]
  - SEPSIS [None]
  - BLOOD POTASSIUM DECREASED [None]
  - TYPE 2 DIABETES MELLITUS [None]
  - SCOLIOSIS [None]
  - HYPOAESTHESIA ORAL [None]
  - MUSCULOSKELETAL DISORDER [None]
  - CELLULITIS [None]
  - OCULAR HYPERTENSION [None]
  - SINUSITIS [None]
  - WOUND INFECTION [None]
  - BURSITIS [None]
  - SPINAL OSTEOARTHRITIS [None]
  - RADICULITIS [None]
  - NERVE ROOT COMPRESSION [None]
  - ANXIETY [None]
